FAERS Safety Report 9121580 (Version 2)
Quarter: 2014Q2

REPORT INFORMATION
  Report Type: Spontaneous
  Country: US (occurrence: US)
  Receive Date: 20130227
  Receipt Date: 20140501
  Transmission Date: 20141212
  Serious: Yes (Hospitalization, Other)
  Sender: FDA-Public Use
  Company Number: US-BIOGENIDEC-2013BI018328

PATIENT
  Age: 60 Year
  Sex: Female

DRUGS (1)
  1. AVONEX [Suspect]
     Indication: MULTIPLE SCLEROSIS
     Route: 030
     Dates: start: 19980701

REACTIONS (7)
  - Intervertebral disc disorder [Recovered/Resolved]
  - Central nervous system lymphoma [Recovered/Resolved]
  - Spinal column stenosis [Recovered/Resolved]
  - Abasia [Recovered/Resolved]
  - Hypertension [Recovered/Resolved]
  - Weight increased [Recovered/Resolved]
  - Fatigue [Recovered/Resolved]
